FAERS Safety Report 21503755 (Version 2)
Quarter: 2022Q4

REPORT INFORMATION
  Report Type: Spontaneous
  Country: CO (occurrence: CO)
  Receive Date: 20221025
  Receipt Date: 20221226
  Transmission Date: 20230113
  Serious: Yes (Death, Hospitalization)
  Sender: FDA-Public Use
  Company Number: CO-SA-SAC20221021001582

PATIENT
  Age: 89 Year
  Sex: Male
  Weight: 55 kg

DRUGS (1)
  1. DUPILUMAB [Suspect]
     Active Substance: DUPILUMAB
     Indication: Dermatitis atopic
     Dosage: 300 MG, QOW
     Route: 058
     Dates: start: 20220810, end: 20221117

REACTIONS (3)
  - Renal disorder [Fatal]
  - Pain [Unknown]
  - Gout [Unknown]

NARRATIVE: CASE EVENT DATE: 20221001
